FAERS Safety Report 6280478-1 (Version None)
Quarter: 2009Q3

REPORT INFORMATION
  Report Type: 
  Country: None (occurrence: None)
  Receive Date: 20090724
  Receipt Date: 20090617
  Transmission Date: 20100115
  Serious: Yes (Hospitalization)
  Sender: FDA-Public Use
  Company Number: A0737547A

PATIENT
  Age: 65 Year
  Sex: Female
  Weight: 72.7 kg

DRUGS (10)
  1. AVANDIA [Suspect]
     Dosage: 4MG TWICE PER DAY
     Route: 048
     Dates: start: 20040601, end: 20070801
  2. ACIPHEX [Concomitant]
  3. ATENOLOL [Concomitant]
  4. HYDROCHLOROTHIAZIDE [Concomitant]
  5. JANUVIA [Concomitant]
  6. LOVASTATIN [Concomitant]
  7. NYSTATIN [Concomitant]
  8. PAROXETINE HCL [Concomitant]
  9. PREMARIN [Concomitant]
  10. PROTONIX [Concomitant]

REACTIONS (1)
  - CARDIAC FAILURE CONGESTIVE [None]
